FAERS Safety Report 17530841 (Version 2)
Quarter: 2020Q2

REPORT INFORMATION
  Report Type: Spontaneous
  Country: ES (occurrence: ES)
  Receive Date: 20200312
  Receipt Date: 20200506
  Transmission Date: 20200713
  Serious: Yes (Hospitalization)
  Sender: FDA-Public Use
  Company Number: ES-TEVA-2020-ES-1198095

PATIENT
  Age: 74 Year
  Sex: Male

DRUGS (14)
  1. FLUOXETINA 20 MG 60 CAPSULAS [Concomitant]
     Indication: ANXIETY
     Dosage: 20 MG
     Route: 048
     Dates: start: 20160305
  2. TOUJEO 300 UNIDADES/ML SOLOSTAR, SOLUCION INYECTABLE EN PLUMA PRECARGA [Concomitant]
     Indication: TYPE 2 DIABETES MELLITUS
     Dosage: 70 IU
     Route: 058
     Dates: start: 20171214
  3. JARDIANCE 25MG COMPRIMIDOS RECUBIERTOS CON PELICULA 30 COMPRIMIDOS [Concomitant]
     Indication: TYPE 2 DIABETES MELLITUS
     Dosage: 25 MG
     Route: 048
     Dates: start: 20171214
  4. EPLERENONA 25 MG 30 COMPRIMIDOS [Concomitant]
     Indication: HYPERTENSIVE HEART DISEASE
     Dosage: 50 MG
     Route: 048
     Dates: start: 20160106
  5. DUTASTERIDA/TAMSULOSINA 0,5 MG/0,4 MG 30 CAPSULAS [Concomitant]
     Indication: BENIGN PROSTATIC HYPERPLASIA
     Dosage: 1 DF
     Route: 048
     Dates: start: 20130604
  6. ALOPURINOL 100 MG COMPRIMIDO [Concomitant]
     Indication: GOUT
     Dosage: 100 MG
     Route: 048
     Dates: start: 20130321
  7. EUTIROX 50 MICROGRAMOS COMPRIMIDOS , 100 COMPRIMIDOS [Concomitant]
     Active Substance: LEVOTHYROXINE SODIUM
     Indication: HYPOTHYROIDISM
     Dosage: 50 MCG
     Route: 048
     Dates: start: 20181005
  8. GABAPENTINA 300 MG 90 CAPSULAS [Concomitant]
     Active Substance: GABAPENTIN
     Indication: DIABETIC NEUROPATHY
     Dosage: 300 MG
     Route: 048
     Dates: start: 20140910
  9. ZANIDIP 10 MG COMPRIMIDOS RECUBIERTOS CON PELICULA , 28 COMPRIMIDOS [Concomitant]
     Indication: ESSENTIAL HYPERTENSION
     Dosage: 10 MG
     Route: 048
     Dates: start: 20131211
  10. ESOMEPRAZOL 20 MG 28 CAPSULAS [Concomitant]
     Indication: DYSPEPSIA
     Dosage: 20 MG
     Route: 048
     Dates: start: 20131211
  11. PALEXIA RETARD 100 MG COMPRIMIDOS DE LIBERACION PROLONGADA, 60 COMPRIM [Concomitant]
     Indication: HYPERTENSIVE HEART DISEASE
     Dosage: 100 MG
     Route: 048
     Dates: start: 20151109
  12. LINAGLIPTINA + METFORMINA [Concomitant]
     Indication: TYPE 2 DIABETES MELLITUS
     Dosage: (2.5 / 1000) MG COMP EVERY / 12 H
     Route: 048
     Dates: start: 20140508
  13. DICLOFENACO (745A) [Suspect]
     Active Substance: DICLOFENAC
     Indication: SPONDYLITIS
     Dosage: 50 MG
     Route: 048
     Dates: start: 20190528, end: 20190530
  14. PREDNISONA (886A) [Suspect]
     Active Substance: PREDNISONE
     Indication: SPONDYLITIS
     Dosage: 30 MG
     Route: 048
     Dates: start: 20190521, end: 20190530

REACTIONS (3)
  - Confusional state [Recovered/Resolved]
  - Diabetic metabolic decompensation [Recovered/Resolved]
  - Pyrexia [Recovered/Resolved]

NARRATIVE: CASE EVENT DATE: 20190530
